FAERS Safety Report 9387089 (Version 1)
Quarter: 2013Q3

REPORT INFORMATION
  Report Type: Spontaneous
  Country: JO (occurrence: JO)
  Receive Date: 20130708
  Receipt Date: 20130708
  Transmission Date: 20140515
  Serious: Yes (Hospitalization, Other)
  Sender: FDA-Public Use
  Company Number: PHHY2013JO069573

PATIENT
  Age: 24 Year
  Sex: Male

DRUGS (7)
  1. MEPERIDINE [Suspect]
     Indication: ANALGESIC THERAPY
     Dosage: 100 MG, UNK
     Route: 030
  2. FENTANYL [Interacting]
     Dosage: 100 UG, UNK
     Route: 042
  3. FLUOXETINE [Interacting]
     Indication: DEPRESSION
     Dosage: 20 MG, PER DAY
  4. MIDAZOLAM [Concomitant]
     Dosage: 3 MG, UNK
     Route: 042
  5. PROPOFOL [Concomitant]
     Dosage: 150 MG, UNK
     Route: 042
  6. SEVOFLURANE [Concomitant]
     Indication: GENERAL ANAESTHESIA
  7. MORPHINE [Concomitant]
     Dosage: 3 MG, UNK
     Route: 042

REACTIONS (12)
  - Serotonin syndrome [Recovered/Resolved]
  - Headache [Recovered/Resolved]
  - Dyspnoea [Recovered/Resolved]
  - Somnolence [Recovered/Resolved]
  - Loss of consciousness [Recovered/Resolved]
  - Depressed level of consciousness [Recovered/Resolved]
  - Tremor [Recovered/Resolved]
  - Blood pressure increased [Recovered/Resolved]
  - Heart rate increased [Recovered/Resolved]
  - Muscle spasticity [Recovered/Resolved]
  - Unresponsive to stimuli [Recovered/Resolved]
  - Drug interaction [Unknown]
